FAERS Safety Report 13697441 (Version 1)
Quarter: 2017Q2

REPORT INFORMATION
  Report Type: Spontaneous
  Country: US (occurrence: US)
  Receive Date: 20170628
  Receipt Date: 20170628
  Transmission Date: 20170830
  Serious: No
  Sender: FDA-Public Use
  Company Number: US-TAKEDA-2017TUS013719

PATIENT
  Age: 59 Year
  Sex: Male
  Weight: 74.83 kg

DRUGS (4)
  1. DULOXETINE. [Concomitant]
     Active Substance: DULOXETINE
     Indication: DEPRESSION
     Dosage: 60 MG, QD
     Route: 048
  2. TRINTELLIX [Suspect]
     Active Substance: VORTIOXETINE HYDROBROMIDE
     Indication: DEPRESSION
     Dosage: 5 MG, QD
     Route: 048
     Dates: start: 20170608, end: 20170612
  3. HYSINGLA ER [Concomitant]
     Active Substance: HYDROCODONE BITARTRATE
     Indication: PAIN
     Dosage: 30 MG, UNK
     Route: 048
  4. TRINTELLIX [Suspect]
     Active Substance: VORTIOXETINE HYDROBROMIDE
     Indication: DISTURBANCE IN ATTENTION
     Dosage: UNK
     Route: 048

REACTIONS (2)
  - Hunger [Recovering/Resolving]
  - Drug administration error [Unknown]

NARRATIVE: CASE EVENT DATE: 20170608
